FAERS Safety Report 8159898-6 (Version None)
Quarter: 2012Q1

REPORT INFORMATION
  Report Type: 
  Country: None (occurrence: None)
  Receive Date: 20120223
  Receipt Date: 20120214
  Transmission Date: 20120608
  Serious: Yes (Other)
  Sender: FDA-Public Use
  Company Number: RU-ABBOTT-12P-251-0906313-00

PATIENT

DRUGS (5)
  1. ATROPINE [Concomitant]
     Indication: PREMEDICATION
     Dosage: AGE SPECIFIC DOSAGE, ONCE
  2. SEVOFLURANE [Suspect]
     Indication: ANAESTHESIA
     Dosage: 8 L/MIN OVER 10-15 MINUTES
     Route: 055
  3. METHOTREXATE [Concomitant]
     Indication: NEOPLASM MALIGNANT
     Dosage: LUMBAR
  4. PREDNISOLONE [Concomitant]
     Indication: PRODUCT USED FOR UNKNOWN INDICATION
  5. CYTOSAR-U [Concomitant]
     Indication: PRODUCT USED FOR UNKNOWN INDICATION

REACTIONS (3)
  - VOMITING [None]
  - NAUSEA [None]
  - HYPERTHERMIA [None]
